FAERS Safety Report 14966418 (Version 2)
Quarter: 2018Q2

REPORT INFORMATION
  Report Type: Report from Study
  Country: None (occurrence: US)
  Receive Date: 20180604
  Receipt Date: 20180606
  Transmission Date: 20180711
  Serious: Yes (Hospitalization, Other)
  Sender: FDA-Public Use
  Company Number: US-ABBVIE-17K-163-2118378-00

PATIENT
  Age: 32 Year
  Sex: Female

DRUGS (16)
  1. GABAPENTIN. [Concomitant]
     Active Substance: GABAPENTIN
     Indication: BIPOLAR DISORDER
  2. PRENATAL VITAMINS [Concomitant]
     Active Substance: VITAMINS
     Indication: PRODUCT USED FOR UNKNOWN INDICATION
  3. HUMIRA [Suspect]
     Active Substance: ADALIMUMAB
     Route: 058
     Dates: start: 2017, end: 20180202
  4. GABAPENTIN. [Concomitant]
     Active Substance: GABAPENTIN
     Indication: POST-TRAUMATIC STRESS DISORDER
  5. GABAPENTIN. [Concomitant]
     Active Substance: GABAPENTIN
     Indication: DEPRESSION
  6. ZOLOFT [Concomitant]
     Active Substance: SERTRALINE HYDROCHLORIDE
     Indication: BIPOLAR DISORDER
  7. BUPROPION. [Concomitant]
     Active Substance: BUPROPION
     Indication: POST-TRAUMATIC STRESS DISORDER
  8. BUPROPION. [Concomitant]
     Active Substance: BUPROPION
     Indication: BIPOLAR DISORDER
  9. HUMIRA [Suspect]
     Active Substance: ADALIMUMAB
     Indication: ANKYLOSING SPONDYLITIS
     Route: 058
     Dates: start: 201702, end: 2017
  10. ASPIRIN. [Concomitant]
     Active Substance: ASPIRIN
     Indication: PRODUCT USED FOR UNKNOWN INDICATION
  11. TYLENOL [Concomitant]
     Active Substance: ACETAMINOPHEN
     Indication: PRODUCT USED FOR UNKNOWN INDICATION
  12. HUMIRA [Suspect]
     Active Substance: ADALIMUMAB
     Route: 058
     Dates: start: 201805
  13. ZOLOFT [Concomitant]
     Active Substance: SERTRALINE HYDROCHLORIDE
     Indication: POST-TRAUMATIC STRESS DISORDER
  14. FOLIC ACID. [Concomitant]
     Active Substance: FOLIC ACID
     Indication: PRODUCT USED FOR UNKNOWN INDICATION
  15. LEVOTHYROXINE. [Concomitant]
     Active Substance: LEVOTHYROXINE
     Indication: HYPOTHYROIDISM
  16. BUPROPION. [Concomitant]
     Active Substance: BUPROPION
     Indication: ANXIETY

REACTIONS (18)
  - Live birth [Unknown]
  - Injection site vesicles [Unknown]
  - Injection site pain [Recovered/Resolved]
  - Pre-eclampsia [Recovered/Resolved]
  - Exposure during pregnancy [Unknown]
  - Eczema [Recovering/Resolving]
  - Injection site pain [Recovering/Resolving]
  - Stress [Recovering/Resolving]
  - Sinusitis [Recovering/Resolving]
  - Twin pregnancy [Unknown]
  - Arthralgia [Unknown]
  - Cervix cerclage procedure [Unknown]
  - Premature delivery [Unknown]
  - Injection site bruising [Recovering/Resolving]
  - Fungal infection [Unknown]
  - Back pain [Recovering/Resolving]
  - Fatigue [Unknown]
  - Headache [Recovering/Resolving]

NARRATIVE: CASE EVENT DATE: 2017
